FAERS Safety Report 8776136 (Version 1)
Quarter: 2012Q4

REPORT INFORMATION
  Report Type: 
  Country: CA (occurrence: CA)
  Receive Date: 20120910
  Receipt Date: 20120910
  Transmission Date: 20130627
  Serious: Yes (Other)
  Sender: FDA-Public Use
  Company Number: CA-TEVA-358016USA

PATIENT
  Sex: Male

DRUGS (8)
  1. THEOPHYLLINE [Suspect]
     Indication: ASTHMA
     Dosage: 300 mg tablets -2 tablets in AM, 1 tablet in PM, took only 2 doses
     Route: 048
     Dates: start: 201208
  2. PULMICORT [Concomitant]
  3. RHINOCORT [Concomitant]
  4. OMEPRAZOLE [Concomitant]
  5. IBUPROFEN [Concomitant]
  6. HYDROCHLOROTHIAZIDE [Concomitant]
  7. ALLOPURINOL [Concomitant]
  8. LEVOTHYROXINE [Concomitant]

REACTIONS (1)
  - Anaphylactic reaction [Recovered/Resolved]
